FAERS Safety Report 17501985 (Version 1)
Quarter: 2020Q1

REPORT INFORMATION
  Report Type: Spontaneous
  Country: DE (occurrence: DE)
  Receive Date: 20200305
  Receipt Date: 20200305
  Transmission Date: 20200409
  Serious: Yes (Other)
  Sender: FDA-Public Use
  Company Number: DE-SA-2020SA056618

PATIENT
  Sex: Female
  Weight: 87 kg

DRUGS (8)
  1. MONTELUKAST SODIUM. [Suspect]
     Active Substance: MONTELUKAST SODIUM
     Indication: PRODUCT USED FOR UNKNOWN INDICATION
     Dosage: 10 MG, QD
     Route: 065
     Dates: start: 201610
  2. LEVOCETIRIZINE [Suspect]
     Active Substance: LEVOCETIRIZINE
     Indication: PRODUCT USED FOR UNKNOWN INDICATION
     Dosage: 5 MG, QID
     Route: 065
     Dates: start: 201504
  3. ZOLMITRIPTAN. [Suspect]
     Active Substance: ZOLMITRIPTAN
     Indication: PRODUCT USED FOR UNKNOWN INDICATION
     Dosage: 5 MG AS NEEDED
     Dates: start: 201702
  4. XOLAIR [Suspect]
     Active Substance: OMALIZUMAB
     Indication: PRODUCT USED FOR UNKNOWN INDICATION
     Dosage: EVERY 14 DAYS
     Route: 058
     Dates: start: 201504
  5. TOPIRAMATE. [Suspect]
     Active Substance: TOPIRAMATE
     Indication: PRODUCT USED FOR UNKNOWN INDICATION
     Dosage: 50 MG, BID
     Route: 065
     Dates: start: 200910
  6. ETHINYLESTRADIOL/ETHISTERONE [Suspect]
     Active Substance: ETHINYL ESTRADIOL\ETHISTERONE
     Indication: CONTRACEPTION
     Dosage: UNK
     Route: 065
     Dates: start: 20191001, end: 20191126
  7. FLUTICASONE PROPIONATE;FORMOTEROL FUMARATE [Suspect]
     Active Substance: FLUTICASONE PROPIONATE\FORMOTEROL FUMARATE
     Dosage: 250/10 MG
     Dates: start: 201105
  8. IBUPROFEN. [Suspect]
     Active Substance: IBUPROFEN
     Indication: PRODUCT USED FOR UNKNOWN INDICATION
     Dosage: 400 MG, PRN

REACTIONS (3)
  - Overdose [Unknown]
  - Off label use [Unknown]
  - Thrombosis [Unknown]

NARRATIVE: CASE EVENT DATE: 201504
